FAERS Safety Report 4649747-2 (Version None)
Quarter: 2005Q2

REPORT INFORMATION
  Report Type: 
  Country: None (occurrence: None)
  Receive Date: 20050502
  Receipt Date: 20050406
  Transmission Date: 20051028
  Serious: Yes (Hospitalization)
  Sender: FDA-Public Use
  Company Number: GB-BRISTOL-MYERS SQUIBB COMPANY-12934337

PATIENT
  Age: 69 Year
  Sex: Male

DRUGS (2)
  1. CETUXIMAB [Suspect]
     Indication: COLORECTAL CANCER
     Dosage: MOST RECENT CETUXIMAB INFUSION (6TH).
     Route: 041
     Dates: start: 20050303, end: 20050303
  2. IRINOTECAN [Suspect]
     Indication: COLORECTAL CANCER
     Dosage: MOST RECENT IRINOTECAN INFUSION ADMINISTERED ON 24-MAR-2005 (2ND).
     Route: 042
     Dates: start: 20050303, end: 20050303

REACTIONS (2)
  - PERIANAL ABSCESS [None]
  - PROCTALGIA [None]
